FAERS Safety Report 10244862 (Version 1)
Quarter: 2014Q2

REPORT INFORMATION
  Report Type: Spontaneous
  Country: BR (occurrence: BR)
  Receive Date: 20140618
  Receipt Date: 20140618
  Transmission Date: 20141212
  Serious: Yes (Other)
  Sender: FDA-Public Use
  Company Number: BR-ELI_LILLY_AND_COMPANY-BR201406002812

PATIENT
  Age: 62 Year
  Sex: Female
  Weight: 70 kg

DRUGS (3)
  1. HUMULIN N [Suspect]
     Indication: DIABETES MELLITUS
     Dosage: 40 IU, EACH MORNING
     Route: 058
     Dates: end: 20140605
  2. HUMULIN N [Suspect]
     Dosage: 20 IU, EACH EVENING
     Route: 058
     Dates: end: 20140605
  3. SINVASTATINA [Concomitant]
     Dosage: 20 MG, EACH EVENING
     Route: 065

REACTIONS (5)
  - Blindness unilateral [Unknown]
  - Hypoacusis [Not Recovered/Not Resolved]
  - Drug dose omission [Recovered/Resolved]
  - Blood glucose increased [Recovered/Resolved]
  - Spinal pain [Not Recovered/Not Resolved]
